FAERS Safety Report 12950963 (Version 1)
Quarter: 2016Q4

REPORT INFORMATION
  Report Type: Spontaneous
  Country: US (occurrence: US)
  Receive Date: 20161116
  Receipt Date: 20161116
  Transmission Date: 20170207
  Serious: Yes (Hospitalization, Other)
  Sender: FDA-Public Use
  Company Number: US-BIOGEN-2009BI018425

PATIENT
  Age: 37 Year
  Sex: Female

DRUGS (1)
  1. AVONEX [Suspect]
     Active Substance: INTERFERON BETA-1A
     Indication: MULTIPLE SCLEROSIS
     Route: 030
     Dates: start: 20021207, end: 20090306

REACTIONS (3)
  - Maternal exposure during pregnancy [Recovered/Resolved]
  - High risk pregnancy [Recovered/Resolved]
  - Abnormal labour [Recovered/Resolved]

NARRATIVE: CASE EVENT DATE: 200903
